FAERS Safety Report 9586120 (Version 2)
Quarter: 2014Q2

REPORT INFORMATION
  Report Type: Spontaneous
  Country: CN (occurrence: CN)
  Receive Date: 20131003
  Receipt Date: 20140612
  Transmission Date: 20141212
  Serious: Yes (Hospitalization)
  Sender: FDA-Public Use
  Company Number: CN-JNJFOC-20130917275

PATIENT
  Age: 31 Year
  Sex: Female

DRUGS (1)
  1. SPORANOX [Suspect]
     Indication: FUNGAL INFECTION
     Route: 048
     Dates: start: 20130703, end: 20130809

REACTIONS (1)
  - Hepatic lesion [Recovered/Resolved]
